FAERS Safety Report 7575244-0 (Version None)
Quarter: 2011Q2

REPORT INFORMATION
  Report Type: 
  Country: None (occurrence: None)
  Receive Date: 20110627
  Receipt Date: 20110616
  Transmission Date: 20111010
  Serious: Yes (Hospitalization, Other)
  Sender: FDA-Public Use
  Company Number: US-ASTRAZENECA-2011SE37060

PATIENT
  Age: 49 Year
  Sex: Female

DRUGS (17)
  1. EPINEPHRINE [Concomitant]
     Dosage: 0.3 MG/0.3
  2. CYCLOBENZAPRINE [Concomitant]
  3. HYDRALAZINE HCL [Concomitant]
  4. AMITIZA [Concomitant]
  5. HYDROXYZINE [Concomitant]
  6. LORAZEPAM [Concomitant]
  7. MUPIROCIN [Concomitant]
     Route: 061
  8. MIRALAX [Concomitant]
     Dosage: ONCE A DAY AND ONCE AT NIGHT
  9. ROLAIDS [Concomitant]
     Dosage: AS NEEDED
  10. WOMENS PROACTIVE VITAMIN [Concomitant]
     Dosage: ONE A DAY
  11. NEXIUM [Suspect]
     Indication: DYSKINESIA OESOPHAGEAL
     Dosage: TWO TIMES A DAY
     Route: 048
  12. BENEFIBER [Concomitant]
     Dosage: ONCE A DAY
  13. NEXIUM [Suspect]
     Indication: HIATUS HERNIA
     Dosage: TWO TIMES A DAY
     Route: 048
  14. NEXIUM [Suspect]
     Indication: GASTROOESOPHAGEAL REFLUX DISEASE
     Dosage: TWO TIMES A DAY
     Route: 048
  15. ALBUTEROL [Concomitant]
     Dosage: INHALER
  16. PROMETHAZINE [Concomitant]
  17. AMITRIPTYLINE HCL [Concomitant]

REACTIONS (23)
  - SURGERY [None]
  - NEURALGIA [None]
  - ANXIETY [None]
  - DEPRESSION [None]
  - HYPERTENSION [None]
  - DYSPEPSIA [None]
  - DRUG DOSE OMISSION [None]
  - FUNGAL INFECTION [None]
  - VOMITING [None]
  - HIATUS HERNIA [None]
  - DIVERTICULUM [None]
  - DEHYDRATION [None]
  - HEPATITIS C [None]
  - DYSKINESIA OESOPHAGEAL [None]
  - THROMBOSIS [None]
  - PAIN [None]
  - IRRITABLE BOWEL SYNDROME [None]
  - MIGRAINE [None]
  - SLEEP DISORDER DUE TO GENERAL MEDICAL CONDITION, INSOMNIA TYPE [None]
  - GASTROOESOPHAGEAL REFLUX DISEASE [None]
  - HYPERHIDROSIS [None]
  - OFF LABEL USE [None]
  - NAUSEA [None]
